FAERS Safety Report 13801726 (Version 1)
Quarter: 2017Q3

REPORT INFORMATION
  Report Type: Spontaneous
  Country: JP (occurrence: JP)
  Receive Date: 20170727
  Receipt Date: 20170727
  Transmission Date: 20171127
  Serious: Yes (Other)
  Sender: FDA-Public Use
  Company Number: JP-SA-2017SA134081

PATIENT

DRUGS (2)
  1. CLOPIDOGREL BISULFATE. [Suspect]
     Active Substance: CLOPIDOGREL BISULFATE
     Route: 065
  2. REPAGLINIDE. [Interacting]
     Active Substance: REPAGLINIDE
     Route: 065

REACTIONS (2)
  - Drug interaction [Unknown]
  - Hypoglycaemia [Unknown]
